FAERS Safety Report 9432354 (Version 1)
Quarter: 2013Q3

REPORT INFORMATION
  Report Type: Spontaneous
  Country: US (occurrence: US)
  Receive Date: 20130731
  Receipt Date: 20130731
  Transmission Date: 20140515
  Serious: Yes (Other)
  Sender: FDA-Public Use
  Company Number: US-PFIZER INC-2013222554

PATIENT
  Age: 33 Year
  Sex: Female

DRUGS (3)
  1. EFFEXOR XR [Suspect]
     Indication: DEPRESSION
     Dosage: 150 MG, 1X/DAY
     Route: 048
     Dates: start: 2012
  2. SEROQUEL [Concomitant]
     Dosage: 100 MG, UNK
  3. XANAX [Concomitant]
     Dosage: 2 MG, 1X/DAY

REACTIONS (1)
  - Cervix carcinoma [Recovered/Resolved]
